FAERS Safety Report 5284903-4 (Version None)
Quarter: 2007Q2

REPORT INFORMATION
  Report Type: 
  Country: None (occurrence: None)
  Receive Date: 20070403
  Receipt Date: 20070326
  Transmission Date: 20071010
  Serious: Yes (Death)
  Sender: FDA-Public Use
  Company Number: GB-AVENTIS-200621505GDDC

PATIENT
  Age: 20 Year
  Sex: Male

DRUGS (2)
  1. LANTUS [Suspect]
     Route: 058
  2. NOVORAPID [Suspect]
     Route: 058

REACTIONS (1)
  - HYPOGLYCAEMIC COMA [None]
